FAERS Safety Report 4868959-6 (Version None)
Quarter: 2005Q4

REPORT INFORMATION
  Report Type: 
  Country: None (occurrence: None)
  Receive Date: 20051223
  Receipt Date: 20051206
  Transmission Date: 20060501
  Serious: Yes (Other)
  Sender: FDA-Public Use
  Company Number: GXKR2005JP02048

PATIENT
  Age: 58 Year
  Sex: Female

DRUGS (4)
  1. RIFAMPICIN [Suspect]
     Indication: PULMONARY TUBERCULOSIS
     Dosage: ORAL
     Route: 048
     Dates: start: 20050101, end: 20050101
  2. PYRAZINAMIDE [Suspect]
     Indication: PULMONARY HYPERTENSION
     Dosage: ORAL
     Route: 048
     Dates: start: 20050101, end: 20050101
  3. ETHAMBUTOL HCL [Suspect]
     Indication: PULMONARY HYPERTENSION
     Dosage: ORAL
     Route: 048
     Dates: start: 20050101, end: 20050101
  4. ISONIAZID [Suspect]
     Indication: PULMONARY HYPERTENSION
     Dosage: ORAL
     Route: 048
     Dates: start: 20050101, end: 20050101

REACTIONS (1)
  - NEPHRITIS INTERSTITIAL [None]
